FAERS Safety Report 8780709 (Version 1)
Quarter: 2012Q4

REPORT INFORMATION
  Report Type: Report from Study
  Country: CA (occurrence: CA)
  Receive Date: 20120913
  Receipt Date: 20120913
  Transmission Date: 20130627
  Serious: Yes (Hospitalization)
  Sender: FDA-Public Use
  Company Number: CA-JNJFOC-20120901806

PATIENT
  Age: 28 Year
  Sex: Female
  Weight: 52.6 kg

DRUGS (4)
  1. REMICADE [Suspect]
     Indication: COLITIS ULCERATIVE
     Route: 042
     Dates: start: 201205
  2. CLAVULIN [Concomitant]
     Route: 065
     Dates: start: 20120727
  3. CYCLOVIR [Concomitant]
     Route: 065
     Dates: start: 20120806
  4. VALTREX [Concomitant]
     Route: 065
     Dates: start: 20120824

REACTIONS (5)
  - Oropharyngeal pain [Unknown]
  - Rash [Unknown]
  - Oedema [Unknown]
  - Tongue discolouration [Unknown]
  - Abscess [Unknown]
